FAERS Safety Report 14310066 (Version 5)
Quarter: 2018Q1

REPORT INFORMATION
  Report Type: Spontaneous
  Country: US (occurrence: US)
  Receive Date: 20171220
  Receipt Date: 20180205
  Transmission Date: 20180509
  Serious: Yes (Death, Hospitalization)
  Sender: FDA-Public Use
  Company Number: US-ACTELION-A-NJ2017-164495

PATIENT
  Age: 14 Month
  Sex: Female

DRUGS (14)
  1. TRACLEER [Suspect]
     Active Substance: BOSENTAN
     Indication: PULMONARY ARTERIAL HYPERTENSION
     Dosage: 17 MG, BID
     Route: 048
     Dates: start: 201708
  2. OMEPRAZOLE. [Concomitant]
     Active Substance: OMEPRAZOLE
     Dosage: 8.5 MG, Q12HRS
     Dates: start: 20170113
  3. DEXMEDETOMIDINE. [Concomitant]
     Active Substance: DEXMEDETOMIDINE
  4. TRACLEER [Suspect]
     Active Substance: BOSENTAN
     Dosage: 17.5 MG, BID
     Route: 048
  5. LORAZEPAM. [Concomitant]
     Active Substance: LORAZEPAM
  6. REGLAN [Concomitant]
     Active Substance: METOCLOPRAMIDE HYDROCHLORIDE
     Dosage: 0.8 MG, Q6HRS
     Dates: start: 20170807
  7. ASPIRIN. [Concomitant]
     Active Substance: ASPIRIN
     Dosage: 40.5 MG, QD
     Dates: start: 20171002
  8. SILDENAFIL. [Concomitant]
     Active Substance: SILDENAFIL
     Dosage: 17 MG, Q6HRS
     Dates: start: 20170705
  9. CEFTRIAXONE. [Concomitant]
     Active Substance: CEFTRIAXONE
     Dosage: 50 MG/KG, Q12HRS
     Dates: start: 20180107
  10. VANCOMYCIN [Concomitant]
     Active Substance: VANCOMYCIN
     Dosage: 15 MG/KG, UNK
     Dates: start: 20180107
  11. OMEPRAZOLE. [Concomitant]
     Active Substance: OMEPRAZOLE
     Dosage: 10 MG, Q12HRS
     Dates: start: 20170113
  12. MILRINONE [Concomitant]
     Active Substance: MILRINONE
  13. FUROSEMIDE. [Concomitant]
     Active Substance: FUROSEMIDE
     Dosage: 2 MG/KG, Q6HRS
  14. EPINEPHRINE. [Concomitant]
     Active Substance: EPINEPHRINE

REACTIONS (3)
  - Respiratory failure [Fatal]
  - Cyanosis [Recovering/Resolving]
  - Ventricular dysfunction [Recovering/Resolving]

NARRATIVE: CASE EVENT DATE: 20171205
